FAERS Safety Report 7996870-0 (Version None)
Quarter: 2011Q4

REPORT INFORMATION
  Report Type: 
  Country: None (occurrence: None)
  Receive Date: 20111221
  Receipt Date: 20111210
  Transmission Date: 20120403
  Serious: Yes (Hospitalization, Other)
  Sender: FDA-Public Use
  Company Number: MX-BRISTOL-MYERS SQUIBB COMPANY-16286973

PATIENT
  Age: 79 Year
  Sex: Female
  Weight: 55 kg

DRUGS (4)
  1. METFORMIN HCL [Concomitant]
     Indication: TYPE 2 DIABETES MELLITUS
     Dosage: 1 DF: 1 TAB
     Route: 048
     Dates: start: 20070101
  2. IRBESARTAN AND HYDROCHLOROTHIAZIDE [Suspect]
     Indication: HYPERTENSION
     Dosage: 1 DF: 1 TAB
     Route: 048
     Dates: end: 20110701
  3. IRBESARTAN [Suspect]
     Indication: HYPERTENSION
     Dosage: 1DF: 1 TAB
     Route: 048
     Dates: end: 20110701
  4. ANGIOTROFIN [Concomitant]
     Dosage: 1 DF: 1 TAB
     Route: 048

REACTIONS (6)
  - HYPONATRAEMIA [None]
  - LYMPH NODE PAIN [None]
  - MALAISE [None]
  - OSTEOARTHRITIS [None]
  - HYPERTENSION [None]
  - TYPE 2 DIABETES MELLITUS [None]
